FAERS Safety Report 5243719-5 (Version None)
Quarter: 2007Q1

REPORT INFORMATION
  Report Type: 
  Country: None (occurrence: None)
  Receive Date: 20070220
  Receipt Date: 20070220
  Transmission Date: 20070707
  Serious: Yes (Disabling)
  Sender: FDA-Public Use
  Company Number: None

PATIENT
  Age: 55 Year
  Sex: Female
  Weight: 90.7194 kg

DRUGS (1)
  1. PRAVACHOL [Suspect]
     Indication: BLOOD CHOLESTEROL
     Dosage: 20-MG.  HS  PO
     Route: 048
     Dates: start: 20070119, end: 20070219

REACTIONS (4)
  - ARTHRALGIA [None]
  - HEADACHE [None]
  - MYALGIA [None]
  - RENAL DISORDER [None]
